FAERS Safety Report 10286615 (Version 1)
Quarter: 2014Q3

REPORT INFORMATION
  Report Type: Spontaneous
  Country: FR (occurrence: FR)
  Receive Date: 20140709
  Receipt Date: 20140709
  Transmission Date: 20150326
  Serious: Yes (Death, Life-Threatening)
  Sender: FDA-Public Use
  Company Number: FR-SA-2014SA086074

PATIENT
  Age: 80 Year
  Sex: Female

DRUGS (7)
  1. LANTUS [Suspect]
     Active Substance: INSULIN GLARGINE
     Indication: DIABETES MELLITUS
     Route: 065
     Dates: start: 201403
  2. LANTUS [Suspect]
     Active Substance: INSULIN GLARGINE
     Indication: DIABETES MELLITUS
     Route: 058
     Dates: start: 201405, end: 20140602
  3. HUMALOG [Concomitant]
     Active Substance: INSULIN LISPRO
     Dates: start: 201403
  4. LEVEMIR [Concomitant]
     Active Substance: INSULIN DETEMIR
  5. KARDEGIC [Concomitant]
     Active Substance: ASPIRIN LYSINE
     Route: 048
     Dates: start: 20140602
  6. NOVONORM [Concomitant]
     Active Substance: REPAGLINIDE
  7. TEMESTA [Concomitant]
     Active Substance: LORAZEPAM
     Route: 048
     Dates: start: 20140602

REACTIONS (1)
  - Hypoglycaemic coma [Fatal]

NARRATIVE: CASE EVENT DATE: 20140602
